FAERS Safety Report 5076665-0 (Version None)
Quarter: 2006Q3

REPORT INFORMATION
  Report Type: 
  Country: None (occurrence: None)
  Receive Date: 20060810
  Receipt Date: 20060802
  Transmission Date: 20061208
  Serious: Yes (Hospitalization)
  Sender: FDA-Public Use
  Company Number: FR-AVENTIS-200618078GDDC

PATIENT
  Age: 5 Year
  Sex: Female

DRUGS (2)
  1. MINIRIN [Suspect]
     Indication: ENURESIS
     Route: 055
     Dates: start: 20051115, end: 20060311
  2. MINIRIN [Suspect]
     Route: 055
     Dates: start: 20060312, end: 20060312

REACTIONS (6)
  - CONFUSIONAL STATE [None]
  - CONVULSION [None]
  - HYPONATRAEMIA [None]
  - PARAMNESIA [None]
  - POSTICTAL STATE [None]
  - VOMITING [None]
